FAERS Safety Report 11422027 (Version 1)
Quarter: 2015Q3

REPORT INFORMATION
  Report Type: Spontaneous
  Country: US (occurrence: None)
  Receive Date: 20150826
  Receipt Date: 20150826
  Transmission Date: 20151125
  Serious: Yes (Death)
  Sender: FDA-Public Use
  Company Number: None

PATIENT
  Sex: Male

DRUGS (1)
  1. SILDENAFIL 20 MG GREENSTONE [Suspect]
     Active Substance: SILDENAFIL
     Indication: CARDIAC FAILURE CONGESTIVE
     Route: 048
     Dates: start: 20150620

REACTIONS (1)
  - Death [None]
